FAERS Safety Report 22208871 (Version 2)
Quarter: 2023Q2

REPORT INFORMATION
  Report Type: Spontaneous
  Country: US (occurrence: US)
  Receive Date: 20230413
  Receipt Date: 20230424
  Transmission Date: 20230722
  Serious: No
  Sender: FDA-Public Use
  Company Number: US-Calliditas-2023CAL00357

PATIENT
  Age: 35 Year
  Sex: Male
  Weight: 85.5 kg

DRUGS (5)
  1. TARPEYO [Suspect]
     Active Substance: BUDESONIDE
     Indication: IgA nephropathy
     Dosage: 16 MG (4 MG CAPSULES) ONCE DAILY
     Route: 048
     Dates: start: 20230322
  2. LISINOPRIL [Concomitant]
     Active Substance: LISINOPRIL
  3. VITAMIN D NOS [Concomitant]
     Active Substance: VITAMIN D NOS
  4. ATORVASTATIN [Concomitant]
     Active Substance: ATORVASTATIN
  5. FISH OIL [Concomitant]
     Active Substance: FISH OIL

REACTIONS (1)
  - Fatigue [Not Recovered/Not Resolved]

NARRATIVE: CASE EVENT DATE: 20230301
